FAERS Safety Report 18138144 (Version 1)
Quarter: 2020Q3

REPORT INFORMATION
  Report Type: Spontaneous
  Country: US (occurrence: US)
  Receive Date: 20200812
  Receipt Date: 20200812
  Transmission Date: 20201103
  Serious: No
  Sender: FDA-Public Use
  Company Number: US-SA-2020SA205640

PATIENT

DRUGS (1)
  1. DUPIXENT [Suspect]
     Active Substance: DUPILUMAB
     Indication: DERMATITIS ATOPIC
     Dosage: 300 MG, QOW
     Route: 058
     Dates: start: 202002, end: 202005

REACTIONS (5)
  - Pruritus [Unknown]
  - Rash [Unknown]
  - Product dose omission issue [Unknown]
  - Scratch [Unknown]
  - Initial insomnia [Unknown]

NARRATIVE: CASE EVENT DATE: 202005
